FAERS Safety Report 6053336-5 (Version None)
Quarter: 2009Q1

REPORT INFORMATION
  Report Type: 
  Country: None (occurrence: None)
  Receive Date: 20090127
  Receipt Date: 20090119
  Transmission Date: 20090719
  Serious: Yes (Hospitalization)
  Sender: FDA-Public Use
  Company Number: B0554989A

PATIENT
  Age: 79 Year
  Sex: Male
  Weight: 55 kg

DRUGS (5)
  1. AUGMENTIN '125' [Suspect]
     Indication: RESPIRATORY TRACT CONGESTION
     Route: 065
     Dates: start: 20090113, end: 20090114
  2. CEFUROXIME AXETIL [Suspect]
     Indication: DRUG USE FOR UNKNOWN INDICATION
     Route: 065
     Dates: start: 20090115, end: 20090118
  3. VERAPAMIL [Concomitant]
  4. THEOPHYLLINE [Concomitant]
  5. NIFEDIPINE [Concomitant]

REACTIONS (2)
  - DIARRHOEA [None]
  - DYSPNOEA [None]
